FAERS Safety Report 5032572-0 (Version None)
Quarter: 2006Q2

REPORT INFORMATION
  Report Type: 
  Country: None (occurrence: None)
  Receive Date: 20060621
  Receipt Date: 20060621
  Transmission Date: 20061013
  Serious: Yes (Hospitalization, Other)
  Sender: FDA-Public Use
  Company Number: None

PATIENT
  Age: 32 Year
  Sex: Female
  Weight: 58.9676 kg

DRUGS (3)
  1. LEVAQUIN [Suspect]
     Indication: PNEUMONIA
     Dosage: UNKNOWN        IV + ORAL
     Route: 042
  2. BIRTH CONTROL PILLS [Concomitant]
  3. ZOLOFT [Concomitant]

REACTIONS (5)
  - ANGIONEUROTIC OEDEMA [None]
  - DIFFICULTY IN WALKING [None]
  - OEDEMA PERIPHERAL [None]
  - PAIN [None]
  - URTICARIA [None]
